FAERS Safety Report 25088444 (Version 1)
Quarter: 2025Q1

REPORT INFORMATION
  Report Type: Spontaneous
  Country: US (occurrence: US)
  Receive Date: 20250318
  Receipt Date: 20250318
  Transmission Date: 20250409
  Serious: Yes (Other)
  Sender: AUROBINDO
  Company Number: US-AUROBINDO-AUR-APL-2013-03410

PATIENT
  Age: 65 Year
  Sex: Male

DRUGS (11)
  1. RISPERIDONE [Suspect]
     Active Substance: RISPERIDONE
     Indication: Chorea
     Route: 065
  2. RISPERIDONE [Suspect]
     Active Substance: RISPERIDONE
     Indication: Ballismus
  3. HALOPERIDOL [Suspect]
     Active Substance: HALOPERIDOL
     Indication: Chorea
     Route: 065
  4. HALOPERIDOL [Suspect]
     Active Substance: HALOPERIDOL
     Indication: Ballismus
  5. BACLOFEN [Suspect]
     Active Substance: BACLOFEN
     Indication: Chorea
     Route: 065
  6. BACLOFEN [Suspect]
     Active Substance: BACLOFEN
     Indication: Ballismus
  7. VALPROIC ACID [Suspect]
     Active Substance: VALPROIC ACID
     Indication: Chorea
     Route: 065
  8. VALPROIC ACID [Suspect]
     Active Substance: VALPROIC ACID
     Indication: Ballismus
  9. TETRABENAZINE [Concomitant]
     Active Substance: TETRABENAZINE
     Indication: Ballismus
     Dosage: 12.5 MILLIGRAM, 3 TIMES A DAY
     Route: 065
  10. TETRABENAZINE [Concomitant]
     Active Substance: TETRABENAZINE
     Dosage: 12.5 MILLIGRAM, TWO TIMES A DAY (2 WEEKS TO 12.5MG TWICE DAILY,)
     Route: 065
  11. ONABOTULINUMTOXINA [Concomitant]
     Active Substance: ONABOTULINUMTOXINA
     Indication: Product used for unknown indication
     Route: 065

REACTIONS (2)
  - Drug ineffective [Unknown]
  - Sedation [Unknown]
